FAERS Safety Report 5465617-4 (Version None)
Quarter: 2007Q3

REPORT INFORMATION
  Report Type: 
  Country: None (occurrence: None)
  Receive Date: 20070924
  Receipt Date: 20070910
  Transmission Date: 20080115
  Serious: Yes (Other)
  Sender: FDA-Public Use
  Company Number: US-AMGEN-KDL242688

PATIENT
  Sex: Female

DRUGS (2)
  1. ENBREL [Suspect]
     Indication: RHEUMATOID ARTHRITIS
     Route: 058
     Dates: start: 19990101, end: 20070806
  2. METHOTREXATE [Concomitant]
     Route: 048
     Dates: start: 20030101

REACTIONS (4)
  - ARTHROPATHY [None]
  - JOINT SWELLING [None]
  - PAIN IN EXTREMITY [None]
  - SYSTEMIC LUPUS ERYTHEMATOSUS [None]
